FAERS Safety Report 23261207 (Version 5)
Quarter: 2024Q1

REPORT INFORMATION
  Report Type: Report from Study
  Country: US (occurrence: US)
  Receive Date: 20231205
  Receipt Date: 20240302
  Transmission Date: 20240409
  Serious: Yes (Other)
  Sender: FDA-Public Use
  Company Number: US-002147023-NVSC2023US256198

PATIENT
  Sex: Male

DRUGS (1)
  1. KESIMPTA [Suspect]
     Active Substance: OFATUMUMAB
     Indication: Multiple sclerosis
     Dosage: 20 MG
     Route: 065

REACTIONS (11)
  - Multiple sclerosis [Unknown]
  - Cerebral atrophy [Unknown]
  - Muscular weakness [Unknown]
  - Asthenia [Unknown]
  - Memory impairment [Unknown]
  - Balance disorder [Unknown]
  - Communication disorder [Unknown]
  - Fatigue [Unknown]
  - Headache [Unknown]
  - Peroneal nerve palsy [Unknown]
  - Depression [Unknown]
